FAERS Safety Report 4668279-9 (Version None)
Quarter: 2005Q2

REPORT INFORMATION
  Report Type: 
  Country: None (occurrence: None)
  Receive Date: 20050523
  Receipt Date: 20041118
  Transmission Date: 20051028
  Serious: Yes (Other)
  Sender: FDA-Public Use
  Company Number: PHEH2004US12528

PATIENT
  Age: 54 Year
  Sex: Female

DRUGS (4)
  1. AREDIA [Suspect]
     Indication: MULTIPLE MYELOMA
     Dosage: 90 MG EVERY MONTH
     Dates: start: 19990701, end: 20021201
  2. THALIDOMIDE [Concomitant]
     Indication: MULTIPLE MYELOMA
     Dosage: 150  (UNSPECIFIED)
     Dates: start: 20021101, end: 20030401
  3. DECADRON                                /CAN/ [Concomitant]
     Indication: MULTIPLE MYELOMA
     Dosage: 20 MG 2 X PER WEEK
     Dates: start: 20021101, end: 20030401
  4. ZOMETA [Suspect]
     Indication: MULTIPLE MYELOMA
     Dosage: 4 MG EVERY MONTH
     Dates: start: 20020101, end: 20040901

REACTIONS (1)
  - OSTEONECROSIS [None]
